FAERS Safety Report 5780903-6 (Version None)
Quarter: 2008Q2

REPORT INFORMATION
  Report Type: 
  Country: None (occurrence: None)
  Receive Date: 20080620
  Receipt Date: 20080610
  Transmission Date: 20081010
  Serious: Yes (Other)
  Sender: FDA-Public Use
  Company Number: AT-PFIZER INC-2008048745

PATIENT
  Sex: Female

DRUGS (2)
  1. ZELDOX (CAPSULES) [Suspect]
     Indication: OBSESSIVE-COMPULSIVE DISORDER
     Dosage: DAILY DOSE:140MG
     Route: 048
  2. TRITTICO [Interacting]

REACTIONS (2)
  - DRUG INTERACTION [None]
  - TONGUE SPASM [None]
